FAERS Safety Report 9848730 (Version 1)
Quarter: 2014Q1

REPORT INFORMATION
  Report Type: Spontaneous
  Country: US (occurrence: US)
  Receive Date: 20140128
  Receipt Date: 20140128
  Transmission Date: 20141002
  Serious: No
  Sender: FDA-Public Use
  Company Number: US-BAYER-2014-014147

PATIENT
  Age: 85 Year
  Sex: Female
  Weight: 50 kg

DRUGS (5)
  1. ALEVE CAPLET [Suspect]
     Indication: INFLAMMATION
     Dosage: 1 DF, BID
     Route: 048
  2. BIOTIN [Concomitant]
  3. CALCIUM WITH VITAMIN D [Concomitant]
  4. FISH OIL [Concomitant]
  5. ASPIRIN [Concomitant]

REACTIONS (2)
  - Incorrect drug administration duration [None]
  - Off label use [None]
